FAERS Safety Report 5829806-9 (Version None)
Quarter: 2008Q3

REPORT INFORMATION
  Report Type: 
  Country: None (occurrence: None)
  Receive Date: 20080801
  Receipt Date: 20080723
  Transmission Date: 20090109
  Serious: Yes (Hospitalization)
  Sender: FDA-Public Use
  Company Number: DE-WYE-G01759608

PATIENT
  Sex: Male
  Weight: 80 kg

DRUGS (4)
  1. TREVILOR RETARD [Suspect]
     Dosage: 5 CAPSULES (OVERDOSE AMOUNT 750 MG)
     Route: 048
     Dates: start: 20080624, end: 20080624
  2. LAMOTRIGINE [Suspect]
     Dosage: 45 TABLETS (OVERDOSE AMOUNT 4500 MG)
     Route: 048
     Dates: start: 20080624, end: 20080624
  3. SOLVEX [Suspect]
     Dosage: 10 TABLETS (OVERDOSE AMOUNT 40 MG)
     Route: 048
     Dates: start: 20080624, end: 20080624
  4. CITALOPRAM HYDROBROMIDE [Suspect]
     Dosage: 32 TABLETS (OVERDOSE AMOUNT 640 MG)
     Route: 048
     Dates: start: 20080624, end: 20080624

REACTIONS (17)
  - ALANINE AMINOTRANSFERASE INCREASED [None]
  - ASPARTATE AMINOTRANSFERASE INCREASED [None]
  - BLOOD CREATINE PHOSPHOKINASE INCREASED [None]
  - BLOOD CREATININE INCREASED [None]
  - BLOOD LACTATE DEHYDROGENASE INCREASED [None]
  - COMA [None]
  - CONVULSION [None]
  - INTENTIONAL OVERDOSE [None]
  - MYDRIASIS [None]
  - MYOCLONUS [None]
  - PNEUMONIA ASPIRATION [None]
  - RHABDOMYOLYSIS [None]
  - SOMNOLENCE [None]
  - SUICIDE ATTEMPT [None]
  - TACHYCARDIA [None]
  - TACHYPNOEA [None]
  - VOMITING [None]
